FAERS Safety Report 18868956 (Version 3)
Quarter: 2022Q2

REPORT INFORMATION
  Report Type: Spontaneous
  Country: US (occurrence: US)
  Receive Date: 20210209
  Receipt Date: 20220418
  Transmission Date: 20220721
  Serious: No
  Sender: FDA-Public Use
  Company Number: US-PFIZER INC-2021116639

PATIENT
  Age: 72 Year
  Sex: Male

DRUGS (1)
  1. INLYTA [Suspect]
     Active Substance: AXITINIB
     Indication: Renal cancer
     Dosage: 1 MG

REACTIONS (4)
  - Neoplasm progression [Unknown]
  - Myalgia [Unknown]
  - Pain [Unknown]
  - Decreased appetite [Recovered/Resolved]
